FAERS Safety Report 14112249 (Version 1)
Quarter: 2017Q4

REPORT INFORMATION
  Report Type: Spontaneous
  Country: US (occurrence: US)
  Receive Date: 20171020
  Receipt Date: 20171020
  Transmission Date: 20180321
  Serious: Yes (Hospitalization)
  Sender: FDA-Public Use
  Company Number: US-ACTELION-A-US2017-161093

PATIENT
  Age: 50 Year
  Sex: Female

DRUGS (10)
  1. CLONAZEPAM. [Concomitant]
     Active Substance: CLONAZEPAM
  2. TYVASO [Concomitant]
     Active Substance: TREPROSTINIL
  3. ALBUTEROL. [Concomitant]
     Active Substance: ALBUTEROL
  4. ADCIRCA [Concomitant]
     Active Substance: TADALAFIL
  5. PREDNISOLONE. [Concomitant]
     Active Substance: PREDNISOLONE
  6. CALCIUM [Concomitant]
     Active Substance: CALCIUM
  7. OPSUMIT [Suspect]
     Active Substance: MACITENTAN
     Indication: PULMONARY ARTERIAL HYPERTENSION
     Dosage: 10 MG, QD
     Route: 048
     Dates: start: 20131231
  8. VITAMIN D [Concomitant]
     Active Substance: CHOLECALCIFEROL
  9. BUMETANIDE. [Concomitant]
     Active Substance: BUMETANIDE
  10. MORPHINE [Concomitant]
     Active Substance: MORPHINE

REACTIONS (1)
  - Abnormal behaviour [Unknown]
